FAERS Safety Report 6456645-0 (Version None)
Quarter: 2009Q4

REPORT INFORMATION
  Report Type: 
  Country: None (occurrence: None)
  Receive Date: 20091125
  Receipt Date: 20091116
  Transmission Date: 20100525
  Serious: Yes (Death)
  Sender: FDA-Public Use
  Company Number: NO-SANOFI-AVENTIS-2009SA002212

PATIENT
  Age: 81 Year
  Sex: Female

DRUGS (5)
  1. FUROSEMIDE [Suspect]
     Indication: CARDIAC FAILURE
     Route: 048
     Dates: start: 20090826, end: 20090909
  2. KALEORID [Concomitant]
     Route: 048
     Dates: start: 20090826
  3. CALCIUM CARBONATE [Concomitant]
     Route: 048
     Dates: start: 20090822
  4. SELO-ZOK [Concomitant]
     Route: 048
  5. ACETAMINOPHEN [Concomitant]
     Route: 048
     Dates: start: 20070101

REACTIONS (2)
  - APLASTIC ANAEMIA [None]
  - DEATH [None]
